FAERS Safety Report 6916426-8 (Version None)
Quarter: 2010Q3

REPORT INFORMATION
  Report Type: 
  Country: None (occurrence: None)
  Receive Date: 20100810
  Receipt Date: 20100726
  Transmission Date: 20110219
  Serious: Yes (Death, Other)
  Sender: FDA-Public Use
  Company Number: PHHY2010TZ52043

PATIENT
  Age: 4 Year
  Sex: Female

DRUGS (2)
  1. COARTEM [Suspect]
     Indication: MALARIA
  2. QUININE [Concomitant]

REACTIONS (3)
  - CONVULSION [None]
  - COUGH [None]
  - DYSPNOEA [None]
